FAERS Safety Report 5957042-4 (Version None)
Quarter: 2008Q4

REPORT INFORMATION
  Report Type: 
  Country: None (occurrence: None)
  Receive Date: 20081118
  Receipt Date: 20081010
  Transmission Date: 20090506
  Serious: No
  Sender: FDA-Public Use
  Company Number: A0751356A

PATIENT
  Age: 68 Year
  Sex: Female

DRUGS (3)
  1. COREG CR [Suspect]
     Indication: HYPERTENSION
     Dosage: 10MG PER DAY
     Route: 048
     Dates: start: 20080701, end: 20080901
  2. AVAPRO [Concomitant]
  3. SPIRONOLACTONE [Concomitant]

REACTIONS (2)
  - HYPERTENSION [None]
  - PALPITATIONS [None]
